FAERS Safety Report 21742945 (Version 7)
Quarter: 2023Q4

REPORT INFORMATION
  Report Type: Report from Study
  Country: US (occurrence: US)
  Receive Date: 20221217
  Receipt Date: 20231117
  Transmission Date: 20240110
  Serious: Yes (Hospitalization, Other)
  Sender: FDA-Public Use
  Company Number: US-ABBVIE-4239597

PATIENT
  Sex: Female

DRUGS (3)
  1. HUMIRA [Suspect]
     Active Substance: ADALIMUMAB
     Indication: Colitis ulcerative
     Dosage: FORM STRENGTH: 40 MILLIGRAM
     Route: 058
     Dates: start: 20220708
  2. HUMIRA [Suspect]
     Active Substance: ADALIMUMAB
     Dosage: FORM STRENGTH: 40 MILLIGRAM
     Route: 058
  3. HUMIRA [Suspect]
     Active Substance: ADALIMUMAB
     Dosage: CITRATE FREE SYRINGE
     Route: 058
     Dates: start: 20220707

REACTIONS (11)
  - Cerebrovascular accident [Unknown]
  - Fall [Recovering/Resolving]
  - Colitis ulcerative [Unknown]
  - Cerebrovascular accident [Recovered/Resolved]
  - Headache [Unknown]
  - Rib fracture [Recovering/Resolving]
  - Spinal deformity [Not Recovered/Not Resolved]
  - Spinal compression fracture [Recovering/Resolving]
  - Hypertension [Unknown]
  - Diarrhoea [Not Recovered/Not Resolved]
  - Visual impairment [Unknown]

NARRATIVE: CASE EVENT DATE: 20220101
